FAERS Safety Report 9340763 (Version 2)
Quarter: 2015Q2

REPORT INFORMATION
  Report Type: Spontaneous
  Country: ES (occurrence: ES)
  Receive Date: 20130610
  Receipt Date: 20150415
  Transmission Date: 20150821
  Serious: Yes (Hospitalization)
  Sender: FDA-Public Use
  Company Number: PHHY2013ES057335

PATIENT
  Age: 75 Year
  Sex: Male

DRUGS (3)
  1. AMLODIPINE [Concomitant]
     Active Substance: AMLODIPINE BESYLATE
     Indication: HYPERTENSION
     Dosage: 5 MG, QD
     Route: 065
  2. ENALAPRIL [Suspect]
     Active Substance: ENALAPRIL
     Indication: HYPERTENSION
     Dosage: 20 MG, QD
     Route: 065
  3. SIMVASTATIN. [Concomitant]
     Active Substance: SIMVASTATIN
     Indication: DYSLIPIDAEMIA
     Dosage: 20 MG, QD
     Route: 065

REACTIONS (12)
  - Dysphagia [Recovering/Resolving]
  - Palatal disorder [Recovering/Resolving]
  - Odynophagia [Recovering/Resolving]
  - Swollen tongue [Recovering/Resolving]
  - Oropharyngeal swelling [Recovering/Resolving]
  - Aphasia [Recovering/Resolving]
  - Bone abscess [Recovering/Resolving]
  - Angioedema [Recovered/Resolved]
  - Sialoadenitis [Recovering/Resolving]
  - Oedema [Recovering/Resolving]
  - Dysphonia [Recovering/Resolving]
  - Glossodynia [Recovering/Resolving]
